FAERS Safety Report 8616673-3 (Version None)
Quarter: 2012Q3

REPORT INFORMATION
  Report Type: 
  Country: None (occurrence: None)
  Receive Date: 20120823
  Receipt Date: 20120817
  Transmission Date: 20120928
  Serious: Yes (Hospitalization)
  Sender: FDA-Public Use
  Company Number: US-MERCK-1208USA007814

PATIENT

DRUGS (3)
  1. REBETOL [Concomitant]
  2. PHENERGAN HCL [Concomitant]
  3. PEG-INTRON [Suspect]
     Indication: HEPATITIS C
     Dosage: 150 MICROGRAM, QW
     Dates: start: 20120301

REACTIONS (10)
  - DIARRHOEA [None]
  - HYPOTENSION [None]
  - PALLOR [None]
  - HEART RATE INCREASED [None]
  - BLOOD POTASSIUM DECREASED [None]
  - VOMITING [None]
  - DRUG DOSE OMISSION [None]
  - BLOOD MAGNESIUM DECREASED [None]
  - ANAEMIA [None]
  - ASTHENIA [None]
